FAERS Safety Report 11375267 (Version 1)
Quarter: 2015Q3

REPORT INFORMATION
  Report Type: Spontaneous
  Country: DE (occurrence: DE)
  Receive Date: 20150813
  Receipt Date: 20150813
  Transmission Date: 20151125
  Serious: Yes (Other)
  Sender: FDA-Public Use
  Company Number: DE-JUBILANT CADISTA PHARMACEUTICALS-2015JUB00245

PATIENT
  Age: 56 Year
  Sex: Male

DRUGS (3)
  1. DANAZOL. [Concomitant]
     Active Substance: DANAZOL
     Dosage: UNK
     Dates: start: 200012, end: 200103
  2. PREDNISONE. [Suspect]
     Active Substance: PREDNISONE
     Indication: PAROXYSMAL NOCTURNAL HAEMOGLOBINURIA
     Dosage: UNK
     Route: 065
  3. CYCLOSPORIN A [Concomitant]
     Active Substance: CYCLOSPORINE
     Dosage: UNK
     Dates: start: 200111, end: 200202

REACTIONS (6)
  - Type 1 diabetes mellitus [Unknown]
  - Cushing^s syndrome [Unknown]
  - Hypertension [Unknown]
  - Tendon disorder [Unknown]
  - Osteoporosis [Unknown]
  - Portal fibrosis [Unknown]
